FAERS Safety Report 5806614-6 (Version None)
Quarter: 2008Q3

REPORT INFORMATION
  Report Type: 
  Country: None (occurrence: None)
  Receive Date: 20080710
  Receipt Date: 20080701
  Transmission Date: 20090109
  Serious: Yes (Disabling)
  Sender: FDA-Public Use
  Company Number: PHHY2008SK12876

PATIENT
  Sex: Male

DRUGS (4)
  1. ZOMETA [Suspect]
     Dosage: 4 MG PER 3-4 WEEKS
     Route: 042
     Dates: start: 20050810, end: 20071219
  2. DIFERELIN [Concomitant]
     Dosage: 1125 MG PER 3 MONTH
  3. ANDROCUR [Concomitant]
     Dosage: 50 MG
     Route: 048
  4. DECAPEPTYL                              /SCH/ [Concomitant]
     Dosage: 3.75 MG/MONTH

REACTIONS (1)
  - OSTEONECROSIS [None]
